FAERS Safety Report 5835229-9 (Version None)
Quarter: 2008Q3

REPORT INFORMATION
  Report Type: 
  Country: None (occurrence: None)
  Receive Date: 20080806
  Receipt Date: 20080729
  Transmission Date: 20090109
  Serious: Yes (Disabling)
  Sender: FDA-Public Use
  Company Number: GR-BAYER-200821254GPV

PATIENT
  Age: 45 Year
  Sex: Male

DRUGS (1)
  1. NEBIDO [Suspect]
     Indication: AZOOSPERMIA
     Route: 030
     Dates: start: 20071027, end: 20071223

REACTIONS (1)
  - ASPERMIA [None]
